FAERS Safety Report 9908219 (Version 1)
Quarter: 2014Q1

REPORT INFORMATION
  Report Type: Spontaneous
  Country: US (occurrence: None)
  Receive Date: 20140212
  Receipt Date: 20140212
  Transmission Date: 20141002
  Serious: Yes (Hospitalization)
  Sender: FDA-Public Use
  Company Number: None

PATIENT
  Age: 69 Year
  Sex: Female
  Weight: 50 kg

DRUGS (2)
  1. TAXOL [Suspect]
     Route: 042
  2. CISPLATIN [Suspect]
     Route: 042

REACTIONS (1)
  - Febrile neutropenia [None]
